FAERS Safety Report 4602934-1 (Version None)
Quarter: 2005Q1

REPORT INFORMATION
  Report Type: 
  Country: None (occurrence: None)
  Receive Date: 20050307
  Receipt Date: 20050224
  Transmission Date: 20050727
  Serious: Yes (Hospitalization)
  Sender: FDA-Public Use
  Company Number: USA-2005-0019037

PATIENT
  Age: 45 Year
  Sex: Female

DRUGS (4)
  1. CEFDITOREN PIVOXIL (SIMILAR TO NDA-21-222) (CEFDITOREN PIVOXIL) OTHER [Suspect]
     Indication: UPPER RESPIRATORY TRACT INFLAMMATION
     Dosage: 300 MG, UNK, ORAL
     Route: 048
     Dates: start: 20050128, end: 20050208
  2. MIRIDACIN (PROGLUMETACIN) [Concomitant]
  3. MUCODYNE (CARBOCISTEINE) [Concomitant]
  4. SULPIRYNE [Concomitant]

REACTIONS (1)
  - DRUG ERUPTION [None]
